FAERS Safety Report 19601861 (Version 2)
Quarter: 2021Q3

REPORT INFORMATION
  Report Type: Spontaneous
  Country: US (occurrence: US)
  Receive Date: 20210723
  Receipt Date: 20210802
  Transmission Date: 20211014
  Serious: Yes (Life-Threatening, Hospitalization, Other)
  Sender: FDA-Public Use
  Company Number: US-ACCORD-232682

PATIENT
  Age: 40 Year
  Sex: Female

DRUGS (2)
  1. METHOTREXATE. [Suspect]
     Active Substance: METHOTREXATE
     Indication: ACUTE LYMPHOCYTIC LEUKAEMIA
     Dosage: (100 MG/M^2), ON DAY 1
     Route: 042
  2. VINCRISTINE [Concomitant]
     Active Substance: VINCRISTINE
     Indication: ACUTE LYMPHOCYTIC LEUKAEMIA
     Dosage: ON DAY 1.
     Route: 042

REACTIONS (13)
  - Pancytopenia [Recovered/Resolved]
  - Vomiting [Unknown]
  - Rash [Unknown]
  - Face oedema [Unknown]
  - Tachycardia [Unknown]
  - Mucosal inflammation [Unknown]
  - Acute kidney injury [Unknown]
  - Stomatitis [Unknown]
  - Skin exfoliation [Unknown]
  - Myelosuppression [Recovered/Resolved]
  - Diarrhoea [Unknown]
  - Intertrigo [Recovered/Resolved]
  - Drug-induced liver injury [Recovered/Resolved]
